FAERS Safety Report 11858381 (Version 1)
Quarter: 2015Q4

REPORT INFORMATION
  Report Type: Spontaneous
  Country: JP (occurrence: JP)
  Receive Date: 20151222
  Receipt Date: 20151222
  Transmission Date: 20160305
  Serious: Yes (Hospitalization, Other)
  Sender: FDA-Public Use
  Company Number: JP-ELI_LILLY_AND_COMPANY-JP201512003462

PATIENT
  Age: 45 Year
  Sex: Female

DRUGS (11)
  1. CISPLATIN. [Concomitant]
     Active Substance: CISPLATIN
     Indication: LUNG ADENOCARCINOMA
     Dosage: UNK
     Route: 065
     Dates: start: 20150712
  2. ZOMIG [Concomitant]
     Active Substance: ZOLMITRIPTAN
     Route: 065
  3. LUPRAC [Concomitant]
     Active Substance: TORSEMIDE
     Route: 065
  4. DEXAMETHASONE. [Concomitant]
     Active Substance: DEXAMETHASONE
     Route: 065
  5. ZYPREXA [Suspect]
     Active Substance: OLANZAPINE
     Indication: NAUSEA
     Dosage: UNK, QOD
     Route: 048
     Dates: start: 201507
  6. DUROTEP [Concomitant]
     Active Substance: FENTANYL
     Route: 065
  7. CYANOCOBALAMIN. [Concomitant]
     Active Substance: CYANOCOBALAMIN
     Dosage: UNK
     Route: 065
     Dates: start: 201507, end: 20151013
  8. ALIMTA [Suspect]
     Active Substance: PEMETREXED DISODIUM
     Dosage: 500 MG/M2, UNK
     Route: 042
     Dates: start: 20151124
  9. ALIMTA [Suspect]
     Active Substance: PEMETREXED DISODIUM
     Indication: LUNG ADENOCARCINOMA
     Dosage: 500 MG/M2, UNK
     Route: 042
     Dates: start: 20150712, end: 201509
  10. BEVACIZUMAB [Concomitant]
     Active Substance: BEVACIZUMAB
     Indication: LUNG ADENOCARCINOMA
     Dosage: UNK
     Route: 065
     Dates: start: 20150712
  11. FOLIC ACID. [Concomitant]
     Active Substance: FOLIC ACID
     Dosage: UNK
     Route: 065
     Dates: start: 201507

REACTIONS (8)
  - Hepatic function abnormal [Unknown]
  - Febrile neutropenia [Recovered/Resolved]
  - Subarachnoid haemorrhage [Unknown]
  - Rash pruritic [Recovered/Resolved]
  - Off label use [Unknown]
  - Inappropriate schedule of drug administration [Unknown]
  - Leukoencephalopathy [Unknown]
  - Nausea [Unknown]

NARRATIVE: CASE EVENT DATE: 201509
